FAERS Safety Report 18325932 (Version 2)
Quarter: 2020Q4

REPORT INFORMATION
  Report Type: Spontaneous
  Country: US (occurrence: US)
  Receive Date: 20200929
  Receipt Date: 20201022
  Transmission Date: 20210113
  Serious: No
  Sender: FDA-Public Use
  Company Number: US-PFIZER INC-2020375160

PATIENT
  Age: 69 Year
  Sex: Female

DRUGS (2)
  1. FASENRA [Concomitant]
     Active Substance: BENRALIZUMAB
     Indication: HYPERSENSITIVITY
     Dosage: UNK
     Dates: end: 20200810
  2. XELJANZ XR [Suspect]
     Active Substance: TOFACITINIB CITRATE
     Indication: RHEUMATOID ARTHRITIS
     Dosage: 11 MG (1 TABLET), 1X/DAY
     Route: 048
     Dates: start: 202009

REACTIONS (2)
  - Myalgia [Unknown]
  - Alopecia [Unknown]
